FAERS Safety Report 7670677-6 (Version None)
Quarter: 2011Q3

REPORT INFORMATION
  Report Type: 
  Country: None (occurrence: None)
  Receive Date: 20110809
  Receipt Date: 20110804
  Transmission Date: 20111222
  Serious: No
  Sender: FDA-Public Use
  Company Number: US-BIOGENIDEC-2011BI029345

PATIENT
  Age: 42 Year
  Sex: Female

DRUGS (2)
  1. PROVIGIL [Concomitant]
     Indication: FATIGUE
  2. TYSABRI [Suspect]
     Indication: MULTIPLE SCLEROSIS
     Route: 042
     Dates: start: 20110323

REACTIONS (6)
  - ARTHRALGIA [None]
  - BLOOD PRESSURE INCREASED [None]
  - HEART RATE INCREASED [None]
  - HEADACHE [None]
  - FALL [None]
  - PSYCHOMOTOR HYPERACTIVITY [None]
